FAERS Safety Report 13957615 (Version 1)
Quarter: 2017Q3

REPORT INFORMATION
  Report Type: Spontaneous
  Country: US (occurrence: US)
  Receive Date: 20170911
  Receipt Date: 20170911
  Transmission Date: 20171128
  Serious: No
  Sender: FDA-Public Use
  Company Number: US-ROCHE-1130975

PATIENT
  Sex: Female

DRUGS (5)
  1. TYLENOL [Concomitant]
     Active Substance: ACETAMINOPHEN
  2. TENORMIN 50 [Concomitant]
     Route: 065
  3. RITUXAN [Suspect]
     Active Substance: RITUXIMAB
     Indication: LYMPHOCYTIC LEUKAEMIA
  4. COUMADIN [Concomitant]
     Active Substance: WARFARIN SODIUM
  5. RITUXAN [Suspect]
     Active Substance: RITUXIMAB
     Indication: LYMPHOCYTIC LYMPHOMA
     Route: 065
     Dates: start: 19980108

REACTIONS (3)
  - Urinary tract infection [Unknown]
  - Mucosal inflammation [Unknown]
  - Viral infection [Unknown]
